FAERS Safety Report 10190378 (Version 2)
Quarter: 2014Q2

REPORT INFORMATION
  Report Type: Spontaneous
  Country: US (occurrence: US)
  Receive Date: 20140522
  Receipt Date: 20140522
  Transmission Date: 20141212
  Serious: Yes (Hospitalization)
  Sender: FDA-Public Use
  Company Number: US-JNJFOC-20140512849

PATIENT
  Age: 50 Year
  Sex: Male

DRUGS (3)
  1. OLYSIO [Suspect]
     Indication: HEPATITIS C
     Route: 065
     Dates: start: 20140513
  2. SOVALDI [Concomitant]
     Indication: HEPATITIS C
     Route: 065
     Dates: start: 20140513
  3. INSULIN [Concomitant]
     Indication: DIABETES MELLITUS
     Route: 065

REACTIONS (3)
  - Pneumonia [Not Recovered/Not Resolved]
  - Acute respiratory failure [Not Recovered/Not Resolved]
  - Off label use [Unknown]
